FAERS Safety Report 24229774 (Version 12)
Quarter: 2025Q4

REPORT INFORMATION
  Report Type: Report from Study
  Country: BR (occurrence: BR)
  Receive Date: 20240820
  Receipt Date: 20251024
  Transmission Date: 20260117
  Serious: Yes (Life-Threatening, Other)
  Sender: NOVARTIS
  Company Number: BR-002147023-NVSC2023BR264316

PATIENT
  Age: 49 Year
  Sex: Female

DRUGS (10)
  1. KISQALI [Suspect]
     Active Substance: RIBOCICLIB SUCCINATE
     Indication: Metastases to lung
     Dosage: UNK
     Route: 065
     Dates: start: 20231028
  2. KISQALI [Suspect]
     Active Substance: RIBOCICLIB SUCCINATE
     Indication: Metastases to liver
     Dosage: UNK
     Route: 065
  3. KISQALI [Suspect]
     Active Substance: RIBOCICLIB SUCCINATE
     Indication: Metastases to bone
     Dosage: UNK
     Route: 065
  4. KISQALI [Suspect]
     Active Substance: RIBOCICLIB SUCCINATE
     Indication: Breast cancer
     Dosage: UNK
     Route: 065
  5. KISQALI [Suspect]
     Active Substance: RIBOCICLIB SUCCINATE
     Indication: Breast cancer metastatic
     Dosage: 3 DOSAGE FORM, QD (3 TABLETS)
     Route: 065
     Dates: start: 20240811, end: 20241124
  6. KISQALI [Suspect]
     Active Substance: RIBOCICLIB SUCCINATE
     Dosage: 2 DOSAGE FORM
     Route: 065
  7. KISQALI [Suspect]
     Active Substance: RIBOCICLIB SUCCINATE
     Dosage: 2 DOSAGE FORM
     Route: 065
  8. ANASTROZOLE [Suspect]
     Active Substance: ANASTROZOLE
     Indication: Breast cancer
     Dosage: UNK
     Route: 065
  9. ANASTROZOLE [Concomitant]
     Active Substance: ANASTROZOLE
     Indication: Product used for unknown indication
     Dosage: UNK
     Route: 065
  10. LOSARTAN POTASSIUM [Concomitant]
     Active Substance: LOSARTAN POTASSIUM
     Indication: Hypertension
     Dosage: 50 MG, QD ( 1 DOSAGE FORM QD)
     Route: 048

REACTIONS (65)
  - Thinking abnormal [Unknown]
  - Metastases to bone [Unknown]
  - Gingival bleeding [Unknown]
  - Pyrexia [Recovered/Resolved]
  - Nausea [Recovered/Resolved]
  - Headache [Recovered/Resolved]
  - Abdominal pain upper [Recovered/Resolved]
  - Dyspepsia [Recovered/Resolved]
  - Blood pressure increased [Recovered/Resolved]
  - Fatigue [Recovered/Resolved]
  - Asthenia [Recovered/Resolved]
  - Dysphonia [Recovered/Resolved]
  - Dysphagia [Recovering/Resolving]
  - Oropharyngeal pain [Recovered/Resolved]
  - Influenza [Recovered/Resolved]
  - Nasal congestion [Recovered/Resolved]
  - Productive cough [Recovering/Resolving]
  - Dyspnoea [Unknown]
  - Sinusitis [Recovered/Resolved]
  - Oropharyngeal discomfort [Recovered/Resolved]
  - Pain [Recovered/Resolved]
  - Eye pruritus [Recovered/Resolved]
  - Headache [Recovering/Resolving]
  - Ill-defined disorder [Recovered/Resolved]
  - Nervousness [Unknown]
  - Malaise [Recovered/Resolved]
  - Memory impairment [Recovered/Resolved]
  - Stress [Unknown]
  - Fatigue [Recovering/Resolving]
  - Depressed mood [Recovering/Resolving]
  - Tongue coated [Recovered/Resolved]
  - Tongue haemorrhage [Recovered/Resolved]
  - Abdominal discomfort [Unknown]
  - Glossodynia [Recovered/Resolved]
  - Illness [Unknown]
  - Back pain [Unknown]
  - Weight increased [Unknown]
  - Dysgeusia [Not Recovered/Not Resolved]
  - Hyperhidrosis [Unknown]
  - Dysphonia [Not Recovered/Not Resolved]
  - Influenza [Recovered/Resolved]
  - Eye pruritus [Not Recovered/Not Resolved]
  - Sinusitis [Unknown]
  - Aphonia [Recovering/Resolving]
  - Sneezing [Recovering/Resolving]
  - Facial pain [Unknown]
  - Nasal pruritus [Unknown]
  - Rhinalgia [Recovering/Resolving]
  - Eye pain [Recovering/Resolving]
  - Ear pain [Recovering/Resolving]
  - Lacrimation increased [Not Recovered/Not Resolved]
  - Product supply issue [Unknown]
  - Ill-defined disorder [Unknown]
  - Ear pruritus [Unknown]
  - Tongue discomfort [Recovered/Resolved]
  - Glossitis [Unknown]
  - Tongue coated [Unknown]
  - Plicated tongue [Unknown]
  - Glossodynia [Unknown]
  - Tongue haemorrhage [Unknown]
  - Eating disorder [Unknown]
  - Toothache [Recovering/Resolving]
  - Gingival swelling [Recovering/Resolving]
  - Alopecia [Not Recovered/Not Resolved]
  - Tongue injury [Recovering/Resolving]

NARRATIVE: CASE EVENT DATE: 20231028
